FAERS Safety Report 5781844-0 (Version None)
Quarter: 2008Q2

REPORT INFORMATION
  Report Type: 
  Country: None (occurrence: None)
  Receive Date: 20080623
  Receipt Date: 20080305
  Transmission Date: 20081010
  Serious: Yes (Other)
  Sender: FDA-Public Use
  Company Number: US-ASTRAZENECA-2008UW04516

PATIENT
  Age: 37 Year
  Sex: Female

DRUGS (3)
  1. RHINOCORT [Suspect]
     Indication: INFLAMMATION
     Dosage: 2 SPRAYS EACH NOSTRIL
     Route: 045
  2. RHINOCORT [Suspect]
     Indication: PRURITUS
     Dosage: 2 SPRAYS EACH NOSTRIL
     Route: 045
  3. BIRTH CONTROL PILLS [Concomitant]

REACTIONS (2)
  - EPISTAXIS [None]
  - PHARYNGEAL OEDEMA [None]
